FAERS Safety Report 6455405-4 (Version None)
Quarter: 2009Q4

REPORT INFORMATION
  Report Type: 
  Country: None (occurrence: None)
  Receive Date: 20091125
  Receipt Date: 20090818
  Transmission Date: 20100525
  Serious: No
  Sender: FDA-Public Use
  Company Number: US-ABBOTT-09P-163-0591871-00

PATIENT
  Sex: Female
  Weight: 86.26 kg

DRUGS (9)
  1. SIMCOR [Suspect]
     Indication: BLOOD TRIGLYCERIDES INCREASED
     Dosage: 1 - 500MG/20MG TAB DAILY AT BEDTIME
     Route: 048
  2. SIMCOR [Suspect]
     Indication: BLOOD TRIGLYCERIDES INCREASED
     Dosage: 1 - 750/20 MG TAB DAILY AT NIGHT
  3. MOBIC [Concomitant]
     Indication: DRUG USE FOR UNKNOWN INDICATION
     Route: 048
  4. GLUCOPHAGE [Concomitant]
     Indication: DRUG USE FOR UNKNOWN INDICATION
     Route: 048
  5. ASPIRIN [Concomitant]
     Indication: DRUG USE FOR UNKNOWN INDICATION
     Route: 048
  6. GLUCOSAMIN/ CHONDROITIN/ MSM [Concomitant]
     Indication: DRUG USE FOR UNKNOWN INDICATION
  7. CALCIUM +D [Concomitant]
     Indication: DRUG USE FOR UNKNOWN INDICATION
  8. VITAMIN D + K [Concomitant]
     Indication: DRUG USE FOR UNKNOWN INDICATION
  9. TRILIPEX [Concomitant]
     Indication: DRUG USE FOR UNKNOWN INDICATION

REACTIONS (3)
  - BLOOD GLUCOSE ABNORMAL [None]
  - FEELING HOT [None]
  - FLUSHING [None]
